FAERS Safety Report 21997027 (Version 3)
Quarter: 2023Q2

REPORT INFORMATION
  Report Type: Report from Study
  Country: US (occurrence: US)
  Receive Date: 20230215
  Receipt Date: 20230426
  Transmission Date: 20230722
  Serious: Yes (Other)
  Sender: FDA-Public Use
  Company Number: US-ABBVIE-4308065

PATIENT
  Age: 66 Year
  Sex: Female
  Weight: 77 kg

DRUGS (6)
  1. HUMIRA [Suspect]
     Active Substance: ADALIMUMAB
     Indication: Psoriatic arthropathy
     Route: 058
  2. HUMIRA [Suspect]
     Active Substance: ADALIMUMAB
     Dosage: FORM STRENGTH- 40 MILLIGRAM
     Route: 058
     Dates: start: 20210614
  3. METHOTREXATE [Concomitant]
     Active Substance: METHOTREXATE
     Indication: Back pain
     Dosage: FORM STRENGTH: 20 MILLIGRAM
     Route: 048
     Dates: start: 20220315
  4. PANTOPRAZOLE [Concomitant]
     Active Substance: PANTOPRAZOLE
     Indication: Gastrooesophageal reflux disease
     Dosage: FORM STRENGTH: 40 MILLIGRAM?FREQUENCY TEXT: DAILY
     Route: 048
  5. TELMISARTAN [Concomitant]
     Active Substance: TELMISARTAN
     Indication: Hypertension
     Dosage: FORM STRENGTH: 20 MILLIGRAM
     Route: 048
     Dates: start: 2010
  6. GABAPENTIN [Concomitant]
     Active Substance: GABAPENTIN
     Indication: Back pain
     Dosage: FORM STRENGTH: 600 MILLIGRAM
     Route: 048

REACTIONS (9)
  - Pulmonary embolism [Unknown]
  - Bronchitis [Unknown]
  - Bronchitis [Recovered/Resolved]
  - Nasopharyngitis [Recovering/Resolving]
  - Illness [Unknown]
  - Fear [Unknown]
  - Immobile [Unknown]
  - Pneumonia [Unknown]
  - Poor quality sleep [Unknown]

NARRATIVE: CASE EVENT DATE: 20220701
